FAERS Safety Report 5171454-0 (Version None)
Quarter: 2006Q4

REPORT INFORMATION
  Report Type: 
  Country: None (occurrence: None)
  Receive Date: 20061208
  Receipt Date: 20061208
  Transmission Date: 20070319
  Serious: Yes (Life-Threatening, Hospitalization, Disabling, Other)
  Sender: FDA-Public Use
  Company Number: None

PATIENT
  Age: 79 Year
  Sex: Male
  Weight: 82 kg

DRUGS (5)
  1. QUINIDINE SULFATE [Suspect]
     Indication: PALPITATIONS
     Dosage: 300MG QD PO
     Route: 048
     Dates: start: 20061111, end: 20061111
  2. QUINARETIC [Concomitant]
  3. CASODEX [Concomitant]
  4. ZANTAC [Concomitant]
  5. MULTI-VITAMIN [Concomitant]

REACTIONS (10)
  - ASTHENIA [None]
  - ATRIOVENTRICULAR BLOCK THIRD DEGREE [None]
  - BLOOD CREATININE INCREASED [None]
  - BRADYCARDIA [None]
  - LIVER FUNCTION TEST ABNORMAL [None]
  - NAUSEA [None]
  - PYREXIA [None]
  - SYNCOPE [None]
  - TORSADE DE POINTES [None]
  - VOMITING [None]
